FAERS Safety Report 21573194 (Version 4)
Quarter: 2023Q1

REPORT INFORMATION
  Report Type: Report from Study
  Country: CA (occurrence: CA)
  Receive Date: 20221109
  Receipt Date: 20230323
  Transmission Date: 20230418
  Serious: Yes (Other)
  Sender: FDA-Public Use
  Company Number: CA-JNJFOC-20221050766

PATIENT
  Age: 38 Year
  Sex: Male
  Weight: 199.76 kg

DRUGS (1)
  1. REMICADE [Suspect]
     Active Substance: INFLIXIMAB
     Indication: Colitis ulcerative
     Dosage: EXPIRY DATE: 31-JUL-2025
     Route: 041
     Dates: start: 20210219

REACTIONS (10)
  - Rectal haemorrhage [Recovered/Resolved]
  - Haematochezia [Unknown]
  - Defaecation urgency [Unknown]
  - COVID-19 [Unknown]
  - Frequent bowel movements [Unknown]
  - Diarrhoea [Unknown]
  - Arthralgia [Unknown]
  - Abdominal pain upper [Unknown]
  - Abdominal discomfort [Recovering/Resolving]
  - Drug ineffective [Unknown]

NARRATIVE: CASE EVENT DATE: 20221020
